FAERS Safety Report 14270621 (Version 1)
Quarter: 2017Q4

REPORT INFORMATION
  Report Type: Spontaneous
  Country: US (occurrence: US)
  Receive Date: 20171211
  Receipt Date: 20171211
  Transmission Date: 20180321
  Serious: Yes (Hospitalization)
  Sender: FDA-Public Use
  Company Number: US-OTSUKA-2017_010587

PATIENT

DRUGS (1)
  1. ABILIFY [Suspect]
     Active Substance: ARIPIPRAZOLE
     Indication: BIPOLAR DISORDER
     Dosage: 1 DF, QD
     Route: 065
     Dates: start: 20030619, end: 201703

REACTIONS (5)
  - Neuropsychiatric symptoms [Unknown]
  - Injury [Unknown]
  - Emotional distress [Unknown]
  - Obsessive-compulsive disorder [Not Recovered/Not Resolved]
  - Impulsive behaviour [Not Recovered/Not Resolved]
